FAERS Safety Report 16087606 (Version 1)
Quarter: 2019Q1

REPORT INFORMATION
  Report Type: Spontaneous
  Country: CN (occurrence: CN)
  Receive Date: 20190319
  Receipt Date: 20190319
  Transmission Date: 20190418
  Serious: Yes (Hospitalization)
  Sender: FDA-Public Use
  Company Number: CN-BAXTER-2019BAX005105

PATIENT
  Age: 64 Year
  Sex: Male
  Weight: 68 kg

DRUGS (18)
  1. MABTHERA [Suspect]
     Active Substance: RITUXIMAB
     Dosage: RITUXIMAB + 0.9% NS
     Route: 041
  2. VINDESINE SULFATE [Suspect]
     Active Substance: VINDESINE SULFATE
     Indication: LYMPHOMA
     Dosage: VINDESINE 5 MG + 0.9% NS 40 ML ON DAY 2
     Route: 042
     Dates: start: 20180808, end: 20180808
  3. 0.9% SODIUM CHLORIDE INJECTION [Suspect]
     Active Substance: SODIUM CHLORIDE
     Dosage: VINDESINE 5 MG + 0.9% NS 40 ML ON DAY 2
     Route: 042
     Dates: start: 20180808, end: 20180808
  4. 0.9% SODIUM CHLORIDE INJECTION [Suspect]
     Active Substance: SODIUM CHLORIDE
     Dosage: DOSE RE-INTRODUCED, RITUXIMAB + 0.9% NS
     Route: 041
  5. 0.9% SODIUM CHLORIDE INJECTION [Suspect]
     Active Substance: SODIUM CHLORIDE
     Dosage: CYCLOPHOSPHAMIDE 1.3 G + 0.9% NS 80 ML ON DAY 2
     Route: 042
     Dates: start: 20180808, end: 20180808
  6. 0.9% SODIUM CHLORIDE INJECTION [Suspect]
     Active Substance: SODIUM CHLORIDE
     Dosage: DOSE RE-INTRODUCED, VINDESINE + 0.9% NS
     Route: 042
  7. EPIRUBICIN HYDROCHLORIDE. [Suspect]
     Active Substance: EPIRUBICIN HYDROCHLORIDE
     Dosage: EPIRUBICIN 70 MG + WATER FOR INJECTION 40 ML ON DAY 3
     Route: 042
     Dates: start: 20180809, end: 20180809
  8. STERILE WATER FOR INJECTION [Suspect]
     Active Substance: WATER
     Indication: MEDICATION DILUTION
     Dosage: EPIRUBICIN 60 MG + WATER FOR INJECTION 40 ML ON DAY 2
     Route: 042
     Dates: start: 20180808, end: 20180808
  9. 0.9% SODIUM CHLORIDE INJECTION [Suspect]
     Active Substance: SODIUM CHLORIDE
     Dosage: DOSE RE-INTRODUCED, CYCLOPHOSPHAMIDE + 0.9% NS
     Route: 042
  10. MABTHERA [Suspect]
     Active Substance: RITUXIMAB
     Indication: LYMPHOMA
     Dosage: RITUXIMAB 700 MG + 0.9% NS 700 ML (DAY 1)
     Route: 041
     Dates: start: 20180807, end: 20180807
  11. EPIRUBICIN HYDROCHLORIDE. [Suspect]
     Active Substance: EPIRUBICIN HYDROCHLORIDE
     Indication: LYMPHOMA
     Dosage: EPIRUBICIN 60 MG+ WATER FOR INJECTION 40 ML ON DAY 2
     Route: 042
     Dates: start: 20180808, end: 20180808
  12. VINDESINE SULFATE [Suspect]
     Active Substance: VINDESINE SULFATE
     Dosage: DOSE RE-INTRODUCED, VINDESINE + 0.9% NS
     Route: 042
  13. EPIRUBICIN HYDROCHLORIDE. [Suspect]
     Active Substance: EPIRUBICIN HYDROCHLORIDE
     Dosage: DOSE RE-INTRODUCED, EPIRUBICIN + WATER FOR INJECTION
     Route: 042
  14. ENDOXAN [Suspect]
     Active Substance: CYCLOPHOSPHAMIDE
     Indication: LYMPHOMA
     Dosage: CYCLOPHOSPHAMIDE 1.3 G + 0.9% NS 80 ML  (DAY 2)
     Route: 042
     Dates: start: 20180808, end: 20180808
  15. STERILE WATER FOR INJECTION [Suspect]
     Active Substance: WATER
     Dosage: DOSE RE-INTRODUCED, EPIRUBICIN + WATER FOR INJECTION
     Route: 042
  16. ENDOXAN [Suspect]
     Active Substance: CYCLOPHOSPHAMIDE
     Dosage: CYCLOPHOSPHAMIDE + 0.9% NS
     Route: 042
  17. 0.9% SODIUM CHLORIDE INJECTION [Suspect]
     Active Substance: SODIUM CHLORIDE
     Indication: MEDICATION DILUTION
     Dosage: RITUXIMAB 700 MG + 0.9% NS 700 ML ON DAY 1
     Route: 041
     Dates: start: 20180807, end: 20180807
  18. STERILE WATER FOR INJECTION [Suspect]
     Active Substance: WATER
     Dosage: EPIRUBICIN 70 MG + WATER FOR INJECTION 40 ML ON DAY 3
     Route: 042
     Dates: start: 20180809, end: 20180809

REACTIONS (1)
  - Bone marrow failure [Recovering/Resolving]

NARRATIVE: CASE EVENT DATE: 20180818
